FAERS Safety Report 11382285 (Version 1)
Quarter: 2015Q3

REPORT INFORMATION
  Report Type: Spontaneous
  Country: US (occurrence: US)
  Receive Date: 20150811
  Receipt Date: 20150811
  Transmission Date: 20151125
  Serious: No
  Sender: FDA-Public Use
  Company Number: US-ELI_LILLY_AND_COMPANY-US201004003148

PATIENT
  Sex: Female

DRUGS (12)
  1. TIOTROPIUM BROMIDE [Concomitant]
     Active Substance: TIOTROPIUM BROMIDE
     Dosage: UNK, UNKNOWN
     Route: 055
  2. NORVASC [Concomitant]
     Active Substance: AMLODIPINE BESYLATE
     Dosage: 5 MG, UNKNOWN
     Route: 048
  3. CLONIDIN [Concomitant]
     Active Substance: CLONIDINE
     Dosage: 0.2 MG, UNKNOWN
     Route: 048
  4. SINGULAIR [Concomitant]
     Active Substance: MONTELUKAST SODIUM
     Dosage: 10 MG, UNKNOWN
     Route: 048
  5. AVAPRO [Concomitant]
     Active Substance: IRBESARTAN
     Dosage: 300 MG, UNKNOWN
     Route: 048
  6. CARBAMAZEPIN [Concomitant]
     Active Substance: CARBAMAZEPINE
     Dosage: 20 MG, UNKNOWN
     Route: 048
  7. SPIRONOLACTONE W/HYDROCHLOROTHIAZIDE [Concomitant]
     Active Substance: HYDROCHLOROTHIAZIDE\SPIRONOLACTONE
     Dosage: UNK, UNKNOWN
     Route: 048
  8. BYSTOLIC [Concomitant]
     Active Substance: NEBIVOLOL HYDROCHLORIDE
     Dosage: 20 MG, UNKNOWN
     Route: 065
  9. ADCIRCA [Suspect]
     Active Substance: TADALAFIL
     Dosage: 20 MG, UNKNOWN
     Route: 048
  10. PROVENTIL                               /USA/ [Concomitant]
     Dosage: UNK, UNKNOWN
     Route: 055
  11. NASONEX [Concomitant]
     Active Substance: MOMETASONE FUROATE
     Dosage: 50 UG, UNKNOWN
     Route: 055
  12. ASPIRIN. [Concomitant]
     Active Substance: ASPIRIN
     Dosage: 81 MG, UNKNOWN
     Route: 048

REACTIONS (5)
  - Hot flush [Unknown]
  - Back pain [Unknown]
  - Tremor [Unknown]
  - Feeling cold [Unknown]
  - Fatigue [Unknown]
